FAERS Safety Report 7490858-4 (Version None)
Quarter: 2011Q2

REPORT INFORMATION
  Report Type: 
  Country: None (occurrence: None)
  Receive Date: 20110517
  Receipt Date: 20110517
  Transmission Date: 20111010
  Serious: Yes (Other)
  Sender: FDA-Public Use
  Company Number: None

PATIENT
  Age: 65 Year
  Sex: Male
  Weight: 81.6475 kg

DRUGS (1)
  1. CREST PRO-HEALTH CPC ORAL RINSE ONLY COMES IN ONE STRENGTH CREST -PROC [Suspect]
     Indication: DENTAL DISORDER PROPHYLAXIS
     Dosage: CA 4 OZ TWICE DAILY BUCCAL
     Route: 002
     Dates: start: 20101101, end: 20110501

REACTIONS (1)
  - TOOTH DISCOLOURATION [None]
